FAERS Safety Report 10371084 (Version 1)
Quarter: 2014Q1

REPORT INFORMATION
  Report Type: Spontaneous
  Country: US (occurrence: None)
  Receive Date: 20140306
  Receipt Date: 20140306
  Transmission Date: 20141002
  Serious: Yes (Other)
  Sender: FDA-Public Use
  Company Number: 163-21880-13083951

PATIENT
  Age: 66 Year
  Sex: Male

DRUGS (3)
  1. REVLIMID (LENALIDOMIDE) (CAPSULES) [Suspect]
     Indication: PLASMA CELL MYELOMA
     Dosage: 21INN28 DAYS.
     Route: 048
     Dates: start: 201103, end: 20131002
  2. REVLIMID (LENALIDOMIDE) (CAPSULES) [Suspect]
     Indication: INFECTED CYST
     Dosage: 21INN28 DAYS.
     Route: 048
     Dates: start: 201103, end: 20131002
  3. BACTRIM [Suspect]
     Indication: INFECTED CYST

REACTIONS (2)
  - Neutrophil count decreased [None]
  - Infected cyst [None]
